FAERS Safety Report 26010953 (Version 1)
Quarter: 2025Q4

REPORT INFORMATION
  Report Type: Spontaneous
  Country: US (occurrence: None)
  Receive Date: 20251106
  Receipt Date: 20251106
  Transmission Date: 20260117
  Serious: Yes (Other)
  Sender: FDA-CTU
  Company Number: None

PATIENT
  Age: 43 Year
  Sex: Male

DRUGS (1)
  1. LENALIDOMIDE [Suspect]
     Active Substance: LENALIDOMIDE
     Indication: Plasmacytoma
     Dosage: 25MG QD ORAL
     Route: 048
     Dates: start: 20251106

REACTIONS (2)
  - Plasmacytoma [None]
  - Off label use [None]

NARRATIVE: CASE EVENT DATE: 20251106
